FAERS Safety Report 20585024 (Version 1)
Quarter: 2022Q1

REPORT INFORMATION
  Report Type: Spontaneous
  Country: CA (occurrence: CA)
  Receive Date: 20220311
  Receipt Date: 20220311
  Transmission Date: 20220424
  Serious: Yes (Other)
  Sender: FDA-Public Use
  Company Number: CA-PFIZER INC-202200358463

PATIENT
  Age: 46 Year
  Sex: Male
  Weight: 96 kg

DRUGS (3)
  1. CABERGOLINE [Suspect]
     Active Substance: CABERGOLINE
     Indication: Macroprolactinaemia
     Dosage: 0.5 MG, 1X/DAY
     Route: 048
  2. PREGABALIN [Concomitant]
     Active Substance: PREGABALIN
  3. SERTRALINE [Concomitant]
     Active Substance: SERTRALINE HYDROCHLORIDE

REACTIONS (6)
  - Product substitution issue [Recovered/Resolved]
  - Affective disorder [Recovered/Resolved]
  - Bradyphrenia [Recovered/Resolved]
  - Dizziness [Recovered/Resolved]
  - Dyspnoea [Recovered/Resolved]
  - Headache [Recovered/Resolved]
